FAERS Safety Report 15993954 (Version 1)
Quarter: 2019Q1

REPORT INFORMATION
  Report Type: Spontaneous
  Country: GB (occurrence: GB)
  Receive Date: 20190222
  Receipt Date: 20190222
  Transmission Date: 20190418
  Serious: Yes (Other)
  Sender: FDA-Public Use
  Company Number: GB-TEVA-2019-GB-1014634

PATIENT
  Age: 67 Year
  Sex: Female

DRUGS (1)
  1. FENTANYL. [Suspect]
     Active Substance: FENTANYL
     Indication: PRODUCT USED FOR UNKNOWN INDICATION
     Dosage: 400MICROGRAM
     Route: 065
     Dates: start: 20181117

REACTIONS (2)
  - Accidental overdose [Unknown]
  - Hypersomnia [Unknown]

NARRATIVE: CASE EVENT DATE: 20181117
